FAERS Safety Report 6701433-0 (Version None)
Quarter: 2010Q2

REPORT INFORMATION
  Report Type: 
  Country: None (occurrence: None)
  Receive Date: 20100429
  Receipt Date: 20100414
  Transmission Date: 20101027
  Serious: Yes (Hospitalization, Other)
  Sender: FDA-Public Use
  Company Number: US-BAYER-201013325NA

PATIENT
  Age: 25 Year
  Sex: Female
  Weight: 91 kg

DRUGS (16)
  1. YASMIN [Suspect]
     Indication: CONTRACEPTION
     Route: 048
     Dates: start: 20030901, end: 20060501
  2. YAZ [Suspect]
     Indication: CONTRACEPTION
     Route: 048
     Dates: start: 20070501, end: 20070901
  3. LIPITOR [Concomitant]
  4. FLOVENT [Concomitant]
  5. ALBUTEROL [Concomitant]
  6. PREDNISONE [Concomitant]
  7. VENTLIN [Concomitant]
  8. ZYRTEC [Concomitant]
  9. CLARITIN [Concomitant]
  10. PREVACID [Concomitant]
  11. HYDROCODONE BITARTRATE [Concomitant]
  12. ERYTHROMYCIN [Concomitant]
  13. SEROQUEL [Concomitant]
  14. COMPAZINE [Concomitant]
  15. PEPCID [Concomitant]
  16. MYLANTA [Concomitant]

REACTIONS (5)
  - ABDOMINAL PAIN [None]
  - BOWEL MOVEMENT IRREGULARITY [None]
  - CHOLELITHIASIS [None]
  - NAUSEA [None]
  - VOMITING [None]
